FAERS Safety Report 16406562 (Version 1)
Quarter: 2019Q2

REPORT INFORMATION
  Report Type: Spontaneous
  Country: US (occurrence: US)
  Receive Date: 20190607
  Receipt Date: 20190607
  Transmission Date: 20190711
  Serious: No
  Sender: FDA-Public Use
  Company Number: US-METUCHEN-STN-2018-0333

PATIENT
  Age: 37 Year
  Sex: Male
  Weight: 63.56 kg

DRUGS (3)
  1. STENDRA [Suspect]
     Active Substance: AVANAFIL
     Indication: ERECTILE DYSFUNCTION
     Dosage: 50MG AS NEEDED
     Route: 048
  2. STENDRA [Suspect]
     Active Substance: AVANAFIL
     Dosage: 50MG AS NEEDED
     Route: 048
     Dates: start: 20180603
  3. LIPITOR [Concomitant]
     Active Substance: ATORVASTATIN CALCIUM
     Indication: PRODUCT USED FOR UNKNOWN INDICATION
     Dosage: 10MG DAILY

REACTIONS (3)
  - Spontaneous penile erection [Unknown]
  - Pollakiuria [Unknown]
  - Painful erection [Unknown]

NARRATIVE: CASE EVENT DATE: 20180603
